FAERS Safety Report 15551528 (Version 1)
Quarter: 2018Q4

REPORT INFORMATION
  Report Type: Report from Study
  Country: US (occurrence: US)
  Receive Date: 20181025
  Receipt Date: 20181025
  Transmission Date: 20190205
  Serious: Yes (Other)
  Sender: FDA-Public Use
  Company Number: US-AMGEN INC.-USASL2018138394

PATIENT
  Age: 76 Year
  Sex: Female

DRUGS (3)
  1. LEVSIN [Concomitant]
     Active Substance: HYOSCYAMINE SULFATE
     Indication: INTESTINAL ULCER
     Dosage: 0.125 MG, Q6H PRN
  2. AIMOVIG [Suspect]
     Active Substance: ERENUMAB-AOOE
     Indication: PRODUCT USED FOR UNKNOWN INDICATION
     Dosage: UNK
     Route: 058
     Dates: start: 20180922, end: 20180922
  3. REGLAN [Concomitant]
     Active Substance: METOCLOPRAMIDE HYDROCHLORIDE
     Indication: INTESTINAL ULCER
     Dosage: 10 MG, TID

REACTIONS (5)
  - Vomiting [Unknown]
  - Dysgeusia [Not Recovered/Not Resolved]
  - Hypophagia [Recovered/Resolved]
  - Abdominal pain upper [Unknown]
  - Constipation [Recovered/Resolved]

NARRATIVE: CASE EVENT DATE: 2018
